FAERS Safety Report 21679301 (Version 1)
Quarter: 2022Q4

REPORT INFORMATION
  Report Type: Spontaneous
  Country: CN (occurrence: CN)
  Receive Date: 20221205
  Receipt Date: 20221205
  Transmission Date: 20230113
  Serious: Yes (Hospitalization)
  Sender: FDA-Public Use
  Company Number: CN-ASTELLAS PHARMA EUROPE B.V.-2022US042146

PATIENT
  Age: 60 Year
  Sex: Male
  Weight: 77 kg

DRUGS (2)
  1. HARNAL [Suspect]
     Active Substance: TAMSULOSIN HYDROCHLORIDE
     Indication: Dysuria
     Dosage: 0.2 MG, ONCE DAILY
     Route: 048
     Dates: start: 20221108, end: 20221110
  2. HARNAL [Suspect]
     Active Substance: TAMSULOSIN HYDROCHLORIDE
     Indication: Benign prostatic hyperplasia

REACTIONS (4)
  - Erythema [Unknown]
  - Discomfort [Recovering/Resolving]
  - Rash [Recovering/Resolving]
  - Pruritus [Recovering/Resolving]

NARRATIVE: CASE EVENT DATE: 20221108
